FAERS Safety Report 18800092 (Version 2)
Quarter: 2021Q1

REPORT INFORMATION
  Report Type: Spontaneous
  Country: US (occurrence: US)
  Receive Date: 20210128
  Receipt Date: 20210208
  Transmission Date: 20210419
  Serious: No
  Sender: FDA-Public Use
  Company Number: US-AMGEN-USASP2021011035

PATIENT
  Age: 65 Year
  Sex: Male

DRUGS (1)
  1. REPATHA [Suspect]
     Active Substance: EVOLOCUMAB
     Indication: PRODUCT USED FOR UNKNOWN INDICATION
     Dosage: UNK UNK, QMO
     Route: 065
     Dates: start: 201808

REACTIONS (4)
  - Dyspnoea [Unknown]
  - Back pain [Recovering/Resolving]
  - Chest pain [Recovering/Resolving]
  - Musculoskeletal chest pain [Unknown]

NARRATIVE: CASE EVENT DATE: 2018
